FAERS Safety Report 12205763 (Version 2)
Quarter: 2016Q2

REPORT INFORMATION
  Report Type: Spontaneous
  Country: DE (occurrence: DE)
  Receive Date: 20160323
  Receipt Date: 20160406
  Transmission Date: 20160815
  Serious: Yes (Life-Threatening)
  Sender: FDA-Public Use
  Company Number: DE-MYLANLABS-2016M1012431

PATIENT

DRUGS (1)
  1. FASTJEKT [Suspect]
     Active Substance: EPINEPHRINE
     Indication: HYPERSENSITIVITY
     Dosage: UNK
     Dates: start: 201303

REACTIONS (2)
  - Device malfunction [Unknown]
  - Device failure [Unknown]
